FAERS Safety Report 5434276-9 (Version None)
Quarter: 2007Q3

REPORT INFORMATION
  Report Type: 
  Country: None (occurrence: None)
  Receive Date: 20070831
  Receipt Date: 20070828
  Transmission Date: 20080115
  Serious: Yes (Death)
  Sender: FDA-Public Use
  Company Number: IT-MINISAL02-75346

PATIENT
  Sex: Female

DRUGS (10)
  1. MULTIHANCE [Suspect]
     Route: 042
     Dates: start: 20070711, end: 20070711
  2. COMBISARTAN [Concomitant]
     Route: 048
  3. LESCOL                             /01224501/ [Concomitant]
     Route: 048
  4. LANOXIN [Concomitant]
     Route: 048
  5. LASIX [Concomitant]
     Route: 048
  6. CARDIOASPIRINE [Concomitant]
     Route: 048
  7. LANSOX [Concomitant]
     Route: 048
  8. GLUCOBAY [Concomitant]
     Route: 048
  9. ACTRAPID [Concomitant]
     Route: 058
  10. ACTRAPHANE [Concomitant]
     Route: 058

REACTIONS (2)
  - CYANOSIS [None]
  - RESPIRATORY ARREST [None]
